FAERS Safety Report 5354416-X (Version None)
Quarter: 2007Q2

REPORT INFORMATION
  Report Type: 
  Country: None (occurrence: None)
  Receive Date: 20070612
  Receipt Date: 20070530
  Transmission Date: 20071010
  Serious: Yes (Other)
  Sender: FDA-Public Use
  Company Number: US-SHR-US-2007-010771

PATIENT
  Age: 54 Year
  Sex: Female
  Weight: 74.376 kg

DRUGS (10)
  1. BETASERON [Suspect]
     Indication: RELAPSING-REMITTING MULTIPLE SCLEROSIS
     Dosage: 8 MIU, EVERY 2D
     Route: 058
     Dates: start: 20060401
  2. PROVIGIL [Concomitant]
  3. FOSAMAX [Concomitant]
  4. DIOVAN [Concomitant]
  5. LOVASTATIN [Concomitant]
  6. ZETIA [Concomitant]
  7. ASPIRIN [Concomitant]
     Dosage: 81 MG, UNK
  8. ZANAFLEX [Concomitant]
  9. VITAMIN E [Concomitant]
     Dosage: ONE A DAY
  10. OYSTER SHELL CALCIUM WITH VITAMIN D [Concomitant]

REACTIONS (2)
  - DIABETES INSIPIDUS [None]
  - FATIGUE [None]
